FAERS Safety Report 14632307 (Version 4)
Quarter: 2018Q3

REPORT INFORMATION
  Report Type: Report from Study
  Country: FR (occurrence: FR)
  Receive Date: 20180313
  Receipt Date: 20180703
  Transmission Date: 20181010
  Serious: Yes (Other)
  Sender: FDA-Public Use
  Company Number: FR-CELGENEUS-FRA-20180302819

PATIENT
  Age: 69 Year
  Sex: Female
  Weight: 45 kg

DRUGS (12)
  1. LEDERFOLDINE [Concomitant]
     Active Substance: LEUCOVORIN
     Indication: ANAEMIA PROPHYLAXIS
     Dosage: 25 MILLIGRAM
     Route: 065
  2. BACTRIM [Concomitant]
     Active Substance: SULFAMETHOXAZOLE\TRIMETHOPRIM
     Indication: INFECTION PROPHYLAXIS
     Dosage: 800 MILLIGRAM
     Route: 065
     Dates: start: 20180220
  3. DIFFU K [Concomitant]
     Active Substance: POTASSIUM CHLORIDE
     Indication: PROPHYLAXIS
     Dosage: 1 IU (INTERNATIONAL UNIT)
     Route: 065
  4. AG?221 [Suspect]
     Active Substance: ENASIDENIB
     Dosage: 50 MILLIGRAM
     Route: 048
     Dates: start: 20180319
  5. ZELITREX [Concomitant]
     Active Substance: VALACYCLOVIR HYDROCHLORIDE
     Indication: INFECTION PROPHYLAXIS
     Dosage: 500 MILLIGRAM
     Route: 065
     Dates: start: 20180208
  6. HIZENTRA [Concomitant]
     Active Substance: HUMAN IMMUNOGLOBULIN G
     Indication: PRIMARY IMMUNODEFICIENCY SYNDROME
     Dosage: 4 GRAM
     Route: 065
     Dates: end: 20180325
  7. CORTANCYL [Concomitant]
     Active Substance: PREDNISONE
     Indication: OSTEOARTHRITIS
     Dosage: 12.5 MILLIGRAM
     Route: 065
     Dates: start: 2014
  8. INEXIUM [Concomitant]
     Active Substance: ESOMEPRAZOLE
     Indication: GASTROOESOPHAGEAL REFLUX DISEASE
     Dosage: 40 MILLIGRAM
     Route: 065
     Dates: start: 20180208
  9. CALCITRIOL. [Concomitant]
     Active Substance: CALCITRIOL
     Indication: OSTEOPOROTIC FRACTURE
     Dosage: 1 OTHER
     Route: 065
  10. ORACILLINE [Concomitant]
     Active Substance: PENICILLIN V
     Indication: OSTEOARTHRITIS
     Dosage: 2 LITERS
     Route: 065
  11. AG?221 [Suspect]
     Active Substance: ENASIDENIB
     Indication: ACUTE MYELOID LEUKAEMIA
     Dosage: 100 MILLIGRAM
     Route: 048
     Dates: start: 20180220, end: 20180303
  12. EFFEXOR [Concomitant]
     Active Substance: VENLAFAXINE HYDROCHLORIDE
     Indication: DEPRESSION
     Dosage: 37.5 MILLIGRAM
     Route: 065

REACTIONS (1)
  - Toxic skin eruption [Recovered/Resolved]

NARRATIVE: CASE EVENT DATE: 20180305
